FAERS Safety Report 9951576 (Version 2)
Quarter: 2014Q2

REPORT INFORMATION
  Report Type: Spontaneous
  Country: US (occurrence: US)
  Receive Date: 20140304
  Receipt Date: 20140527
  Transmission Date: 20141212
  Serious: Yes (Other)
  Sender: FDA-Public Use
  Company Number: US-SA-2014SA025174

PATIENT
  Age: 40 Year
  Sex: Female

DRUGS (8)
  1. LUMIZYME [Suspect]
     Indication: GLYCOGEN STORAGE DISEASE TYPE II
     Route: 042
     Dates: start: 20110906
  2. LUMIZYME [Suspect]
     Indication: GLYCOGEN STORAGE DISEASE TYPE II
     Route: 042
     Dates: start: 20110906
  3. LUMIZYME [Suspect]
     Indication: GLYCOGEN STORAGE DISEASE TYPE II
     Route: 042
     Dates: start: 20110906
  4. BENADRYL [Concomitant]
     Route: 042
  5. MOTRIN [Concomitant]
     Route: 048
  6. ATIVAN [Concomitant]
     Route: 048
  7. ZOFRAN [Concomitant]
     Route: 048
  8. ANALGESICS [Concomitant]
     Indication: PAIN

REACTIONS (4)
  - Spinal disorder [Not Recovered/Not Resolved]
  - Infusion site extravasation [Recovered/Resolved]
  - Limb discomfort [Recovered/Resolved]
  - Infusion site induration [Recovered/Resolved]
